FAERS Safety Report 20391460 (Version 17)
Quarter: 2024Q4

REPORT INFORMATION
  Report Type: Other
  Country: DE (occurrence: DE)
  Receive Date: 20220128
  Receipt Date: 20241227
  Transmission Date: 20250114
  Serious: Yes (Other)
  Sender: MACLEODS
  Company Number: DE-MACLEODS PHARMACEUTICALS US LTD-MAC2022034184

PATIENT

DRUGS (120)
  1. CLOPIDOGREL [Suspect]
     Active Substance: CLOPIDOGREL BISULFATE
     Indication: Product used for unknown indication
     Dosage: UNK, CLOPIDOGREL BISULFATE
     Route: 065
  2. CLOPIDOGREL [Suspect]
     Active Substance: CLOPIDOGREL BISULFATE
     Dosage: UNK UNK, BID (1-0-1)
     Route: 065
     Dates: start: 20201210
  3. ROSUVASTATIN [Suspect]
     Active Substance: ROSUVASTATIN
     Indication: Product used for unknown indication
     Dosage: UNK
     Route: 065
  4. TADALAFIL [Suspect]
     Active Substance: TADALAFIL
     Indication: Product used for unknown indication
     Route: 065
  5. TAMSULOSIN [Suspect]
     Active Substance: TAMSULOSIN
     Indication: Product used for unknown indication
     Dosage: UNK
     Route: 065
  6. BISOPROLOL [Suspect]
     Active Substance: BISOPROLOL
     Indication: Product used for unknown indication
     Dosage: 1 DOSAGE FORM, QD
     Dates: start: 2018, end: 20201210
  7. BISOPROLOL [Suspect]
     Active Substance: BISOPROLOL
     Dosage: 1 DOSAGE FORM, QD, (1-0-0)
     Dates: start: 20201210
  8. DICLOFENAC [Suspect]
     Active Substance: DICLOFENAC
     Indication: Product used for unknown indication
     Dosage: UNK, DICLOFENAC EPOLAMINE
  9. DICLOFENAC [Suspect]
     Active Substance: DICLOFENAC
     Dosage: UNK, GEL
     Route: 065
  10. DICLOFENAC [Suspect]
     Active Substance: DICLOFENAC
     Dosage: DICLOFENAC DIETHYLAMINE
     Route: 065
  11. ASPIRIN [Suspect]
     Active Substance: ASPIRIN
     Indication: Product used for unknown indication
     Dosage: 500 MILLIGRAM, BID, ACETYLSALICYLATE CALCIUM
     Route: 065
  12. ASPIRIN [Suspect]
     Active Substance: ASPIRIN
     Dosage: UNK
     Route: 065
  13. RIVAROXABAN [Suspect]
     Active Substance: RIVAROXABAN
     Indication: Product used for unknown indication
     Dosage: UNK
     Route: 065
  14. ALBUTEROL [Suspect]
     Active Substance: ALBUTEROL
     Indication: Dyspnoea
     Dosage: UNK, INHLAED VIA SPACER WITH PAEDIATRIC MASK, (START DATE AND STOP DATE UNKNOWN DATE IN 2018)
     Dates: start: 2018, end: 2018
  15. ALBUTEROL [Suspect]
     Active Substance: ALBUTEROL
     Indication: Pneumothorax
     Dosage: UNK,  (START DATE AND STOP DATE UNKNOWN DATE IN 2018)
     Dates: start: 2018, end: 2018
  16. ALBUTEROL [Suspect]
     Active Substance: ALBUTEROL
     Indication: Secretion discharge
  17. ALBUTEROL [Suspect]
     Active Substance: ALBUTEROL
     Indication: Nasopharyngitis
  18. ALBUTEROL [Suspect]
     Active Substance: ALBUTEROL
     Indication: Cough
  19. ALBUTEROL [Suspect]
     Active Substance: ALBUTEROL
     Indication: Dysphonia
  20. ALBUTEROL [Suspect]
     Active Substance: ALBUTEROL
     Indication: Pneumothorax
  21. ALBUTEROL [Suspect]
     Active Substance: ALBUTEROL
     Indication: Pneumothorax
  22. ALBUTEROL [Suspect]
     Active Substance: ALBUTEROL
     Indication: Secretion discharge
  23. ALBUTEROL [Suspect]
     Active Substance: ALBUTEROL
     Indication: Productive cough
  24. ALBUTEROL [Suspect]
     Active Substance: ALBUTEROL
     Indication: Secretion discharge
  25. ALBUTEROL [Suspect]
     Active Substance: ALBUTEROL
     Indication: Chest discomfort
  26. IBUPROFEN [Suspect]
     Active Substance: IBUPROFEN
     Indication: Product used for unknown indication
     Dosage: UNK, CAPSULE SOFT PRN
     Route: 065
  27. REPATHA [Suspect]
     Active Substance: EVOLOCUMAB
     Indication: Product used for unknown indication
     Dosage: 1 DOSAGE FORM, 1 IN 56 HOUR
     Route: 065
  28. REPATHA [Suspect]
     Active Substance: EVOLOCUMAB
     Dosage: 1 DOSAGE FORM, Q.W.
     Route: 065
  29. REPATHA [Suspect]
     Active Substance: EVOLOCUMAB
     Dosage: 1 DOSAGE FORM, Q.W.
     Route: 065
  30. REPATHA [Suspect]
     Active Substance: EVOLOCUMAB
     Dosage: 1 DOSAGE FORM, Q.W. (PRE-FILLED SYRINGE)
     Route: 065
  31. MAGNESIUM OROTATE [Suspect]
     Active Substance: MAGNESIUM OROTATE
     Indication: Product used for unknown indication
     Dosage: UNK, TID, (3-2-3)
     Route: 065
  32. IBUPROFEN [Suspect]
     Active Substance: IBUPROFEN
     Indication: Product used for unknown indication
     Dosage: UNK, PRN
     Route: 065
  33. COLESEVELAM [Suspect]
     Active Substance: COLESEVELAM
     Indication: Product used for unknown indication
     Dosage: UNK
     Route: 065
  34. ACETIC ACID\DELTAMETHRIN [Suspect]
     Active Substance: ACETIC ACID\DELTAMETHRIN
     Indication: Product used for unknown indication
     Dosage: UNK
     Route: 065
  35. ACETIC ACID\DELTAMETHRIN [Suspect]
     Active Substance: ACETIC ACID\DELTAMETHRIN
     Dosage: 1000 IU, BID
     Route: 065
  36. ACETIC ACID\DELTAMETHRIN [Suspect]
     Active Substance: ACETIC ACID\DELTAMETHRIN
     Dosage: 500 IU, BID
     Route: 065
  37. MOMETASONE [Suspect]
     Active Substance: MOMETASONE
     Indication: Product used for unknown indication
     Dosage: UNK, PRN
     Route: 065
  38. SOAP [Suspect]
     Active Substance: SOAP
     Indication: Nasopharyngitis
     Dosage: 10 GTT, QD, 10 GTT DROPS QD
     Route: 065
  39. SOAP [Suspect]
     Active Substance: SOAP
     Indication: Bronchitis
     Dosage: UNK, QD
     Route: 065
  40. SOAP [Suspect]
     Active Substance: SOAP
     Indication: Cough
     Dosage: UNK,
     Route: 065
  41. SOAP [Suspect]
     Active Substance: SOAP
     Indication: Pneumothorax
     Dosage: UNK UNK, TID
     Route: 065
  42. SOAP [Suspect]
     Active Substance: SOAP
     Indication: Secretion discharge
     Dosage: UNK, Q3W
     Route: 065
  43. SOAP [Suspect]
     Active Substance: SOAP
     Indication: Asthma
     Dosage: UNK,
     Route: 065
  44. SOAP [Suspect]
     Active Substance: SOAP
     Indication: Dysphonia
     Dosage: UNK UNK, TID,
     Route: 065
  45. SOAP [Suspect]
     Active Substance: SOAP
     Indication: Dyspnoea
  46. SOAP [Suspect]
     Active Substance: SOAP
     Indication: Product used for unknown indication
  47. SOAP [Suspect]
     Active Substance: SOAP
     Indication: Product used for unknown indication
  48. MOMETASONE FUROATE [Suspect]
     Active Substance: MOMETASONE FUROATE
     Indication: Product used for unknown indication
     Dosage: 1 DROP, BID, 2 PUFF(S), BID 1-0-1
     Route: 065
  49. MOMETASONE FUROATE [Suspect]
     Active Substance: MOMETASONE FUROATE
     Dosage: 2 DOSAGE FORM, 2 DOSAGE FORM, DAILY (1 IN 0.5 DAY)
     Route: 065
  50. MOMETASONE FUROATE [Suspect]
     Active Substance: MOMETASONE FUROATE
     Dosage: UNK UNK, BID, 2 PUFFS (1-0-1)
     Route: 065
  51. BIOTIN [Suspect]
     Active Substance: BIOTIN
     Indication: Product used for unknown indication
     Dosage: 1 DOSAGE FORM, QD
     Route: 065
  52. CRESTOR [Suspect]
     Active Substance: ROSUVASTATIN CALCIUM
     Indication: Product used for unknown indication
     Dosage: UNK
     Route: 065
  53. FLUTICASONE PROPIONATE\SALMETEROL XINAFOATE [Suspect]
     Active Substance: FLUTICASONE PROPIONATE\SALMETEROL XINAFOATE
     Indication: Pneumothorax
     Dosage: UNK, START AND END DATE: 2018, UNKNOWN FREQ. (INHALED VIA SPACER WITH PAEDIATRIC MASK)
     Dates: start: 2018, end: 2018
  54. FLUTICASONE PROPIONATE\SALMETEROL XINAFOATE [Suspect]
     Active Substance: FLUTICASONE PROPIONATE\SALMETEROL XINAFOATE
     Indication: Cough
     Dosage: UNK, START DATE IN 2018 AND STOP DATE IN 2018
     Route: 065
     Dates: start: 2018, end: 2018
  55. FLUTICASONE PROPIONATE\SALMETEROL XINAFOATE [Suspect]
     Active Substance: FLUTICASONE PROPIONATE\SALMETEROL XINAFOATE
     Indication: Nasopharyngitis
     Dosage: UNK
     Route: 065
  56. FLUTICASONE PROPIONATE\SALMETEROL XINAFOATE [Suspect]
     Active Substance: FLUTICASONE PROPIONATE\SALMETEROL XINAFOATE
     Indication: Dysphonia
  57. FLUTICASONE PROPIONATE\SALMETEROL XINAFOATE [Suspect]
     Active Substance: FLUTICASONE PROPIONATE\SALMETEROL XINAFOATE
     Indication: Dyspnoea
  58. FLUTICASONE PROPIONATE\SALMETEROL XINAFOATE [Suspect]
     Active Substance: FLUTICASONE PROPIONATE\SALMETEROL XINAFOATE
     Indication: Secretion discharge
  59. FLUTICASONE PROPIONATE\SALMETEROL XINAFOATE [Suspect]
     Active Substance: FLUTICASONE PROPIONATE\SALMETEROL XINAFOATE
     Indication: Product used for unknown indication
  60. COLESEVELAM HYDROCHLORIDE [Suspect]
     Active Substance: COLESEVELAM HYDROCHLORIDE
     Indication: Product used for unknown indication
     Dosage: UNK
     Route: 065
  61. MOMETASONE FUROATE [Suspect]
     Active Substance: MOMETASONE FUROATE
     Indication: Product used for unknown indication
     Dosage: 2 DOSAGE FORM, BID
     Route: 065
  62. GINKGO [Suspect]
     Active Substance: GINKGO
     Indication: Product used for unknown indication
     Dosage: UNK
     Route: 065
  63. GINKGO [Suspect]
     Active Substance: GINKGO
     Dosage: UNK UNK, QD
     Route: 065
  64. GINKGO [Suspect]
     Active Substance: GINKGO
     Dosage: UNK, STRENGTH: 500 BID (1-0-1), 0.5 PER DAY
     Route: 065
  65. ATROVENT [Suspect]
     Active Substance: IPRATROPIUM BROMIDE
     Indication: Secretion discharge
     Dosage: UNK, (START DATE AND STOP DATE UNKNOWN DATE IN 2018)
     Dates: start: 2018, end: 2018
  66. ATROVENT [Suspect]
     Active Substance: IPRATROPIUM BROMIDE
     Indication: Dyspnoea
  67. ATROVENT [Suspect]
     Active Substance: IPRATROPIUM BROMIDE
     Indication: Cough
  68. ATROVENT [Suspect]
     Active Substance: IPRATROPIUM BROMIDE
     Indication: Pneumothorax
  69. ATROVENT [Suspect]
     Active Substance: IPRATROPIUM BROMIDE
     Indication: Nasopharyngitis
  70. ATROVENT [Suspect]
     Active Substance: IPRATROPIUM BROMIDE
     Indication: Dysphonia
  71. ATROVENT [Suspect]
     Active Substance: IPRATROPIUM BROMIDE
     Indication: Pneumothorax
  72. ATROVENT [Suspect]
     Active Substance: IPRATROPIUM BROMIDE
     Indication: Secretion discharge
  73. ATROVENT [Suspect]
     Active Substance: IPRATROPIUM BROMIDE
     Indication: Nasopharyngitis
  74. ATROVENT [Suspect]
     Active Substance: IPRATROPIUM BROMIDE
     Indication: Pneumothorax
  75. ATROVENT [Suspect]
     Active Substance: IPRATROPIUM BROMIDE
     Indication: Pneumothorax
  76. PRALUENT [Suspect]
     Active Substance: ALIROCUMAB
     Indication: Product used for unknown indication
     Dosage: UNK (STRENGTH: 75)
     Route: 065
  77. ASPIRIN [Suspect]
     Active Substance: ASPIRIN
     Indication: Product used for unknown indication
     Dosage: UNK (STRENGTH: 100 MG) ACETYLSALICYLATE CALCIUM]
     Route: 065
  78. ASPIRIN [Suspect]
     Active Substance: ASPIRIN
     Dosage: UNK(STRENGTH: 100),
     Route: 065
  79. TOCOPHEROL [Suspect]
     Active Substance: TOCOPHEROL
     Indication: Product used for unknown indication
     Dosage: 20000 IU, Q.W.
     Route: 065
  80. CALCIUM PANTOTHENATE [Suspect]
     Active Substance: CALCIUM PANTOTHENATE
     Indication: Product used for unknown indication
     Dosage: UNK, TID (2-0-1)
     Route: 065
  81. CALCIUM PANTOTHENATE [Suspect]
     Active Substance: CALCIUM PANTOTHENATE
     Dosage: UNK, TID (2-0-1)
     Route: 065
  82. CALCIUM CARBONATE [Suspect]
     Active Substance: CALCIUM CARBONATE
     Indication: Product used for unknown indication
     Dosage: UNK
     Route: 065
  83. CALCIUM CARBONATE [Suspect]
     Active Substance: CALCIUM CARBONATE
     Dosage: UNK, 1 IN 1.5 DAY UNK, CALCIUM HEXAL (CALCIUM CARBONATE)
     Route: 065
  84. CALCIUM CARBONATE [Suspect]
     Active Substance: CALCIUM CARBONATE
     Dosage: 1000 MILLIGRAM, QD, UNKNOWN BID (STRENGTH: 500) BID (1-0-1)
     Route: 065
  85. AMBROXOL HYDROCHLORIDE [Suspect]
     Active Substance: AMBROXOL HYDROCHLORIDE
     Indication: Product used for unknown indication
     Dosage: UNK
  86. XARELTO [Suspect]
     Active Substance: RIVAROXABAN
     Indication: Product used for unknown indication
     Dosage: UNK
     Route: 065
  87. HERBALS [Suspect]
     Active Substance: HERBALS
     Indication: Product used for unknown indication
     Dosage: UNK
     Route: 065
  88. HERBALS\PHENYL SALICYLATE [Suspect]
     Active Substance: HERBALS\PHENYL SALICYLATE
     Indication: Asthma
     Dosage: 10 GTT, QD, DROPS
     Route: 065
  89. HERBALS\PHENYL SALICYLATE [Suspect]
     Active Substance: HERBALS\PHENYL SALICYLATE
     Indication: Bronchitis
  90. MAGNESIUM ASPARTATE\POTASSIUM ASPARTATE [Suspect]
     Active Substance: MAGNESIUM ASPARTATE\POTASSIUM ASPARTATE
     Indication: Product used for unknown indication
     Dosage: UNK
     Route: 065
  91. ERGOCALCIFEROL [Suspect]
     Active Substance: ERGOCALCIFEROL
     Indication: Product used for unknown indication
     Dosage: 1 DOSAGE FORM, Q.W.
     Route: 065
  92. ERGOCALCIFEROL [Suspect]
     Active Substance: ERGOCALCIFEROL
     Dosage: 2000 INTERNATIONAL UNIT, Q.W.
     Route: 065
  93. CIALIS [Suspect]
     Active Substance: TADALAFIL
     Indication: Product used for unknown indication
     Dosage: UNK
     Route: 065
  94. CIALIS [Suspect]
     Active Substance: TADALAFIL
     Dosage: UNK
     Route: 065
  95. FLUTICASONE PROPIONATE\SALMETEROL XINAFOATE [Suspect]
     Active Substance: FLUTICASONE PROPIONATE\SALMETEROL XINAFOATE
     Indication: Cough
     Dosage: UNK, (START DATE AND STOP DATE: UNKNOWN DATE IN 2018)
     Dates: end: 2018
  96. FLUTICASONE PROPIONATE\SALMETEROL XINAFOATE [Suspect]
     Active Substance: FLUTICASONE PROPIONATE\SALMETEROL XINAFOATE
     Indication: Secretion discharge
     Dosage: UNK (START DATE UNKNOWN DATE IN 2018)
     Dates: start: 2018
  97. FLUTICASONE PROPIONATE\SALMETEROL XINAFOATE [Suspect]
     Active Substance: FLUTICASONE PROPIONATE\SALMETEROL XINAFOATE
     Indication: Nasopharyngitis
  98. FLUTICASONE PROPIONATE\SALMETEROL XINAFOATE [Suspect]
     Active Substance: FLUTICASONE PROPIONATE\SALMETEROL XINAFOATE
     Indication: Dysphonia
  99. FLUTICASONE PROPIONATE\SALMETEROL XINAFOATE [Suspect]
     Active Substance: FLUTICASONE PROPIONATE\SALMETEROL XINAFOATE
     Indication: Dyspnoea
  100. FLUTICASONE PROPIONATE\SALMETEROL XINAFOATE [Suspect]
     Active Substance: FLUTICASONE PROPIONATE\SALMETEROL XINAFOATE
     Indication: Pneumothorax
  101. FLUTICASONE PROPIONATE\SALMETEROL XINAFOATE [Suspect]
     Active Substance: FLUTICASONE PROPIONATE\SALMETEROL XINAFOATE
     Indication: Secretion discharge
  102. FLUTICASONE PROPIONATE\SALMETEROL XINAFOATE [Suspect]
     Active Substance: FLUTICASONE PROPIONATE\SALMETEROL XINAFOATE
     Indication: Pneumothorax
  103. MAGNESIUM OROTATE [Suspect]
     Active Substance: MAGNESIUM OROTATE
     Indication: Product used for unknown indication
     Dosage: UNK (3-2-3)
     Route: 065
  104. GINKGO [Suspect]
     Active Substance: GINKGO
     Indication: Product used for unknown indication
     Dosage: UNK, BID
     Route: 065
  105. GINKGO [Suspect]
     Active Substance: GINKGO
     Dosage: UNK
     Route: 065
  106. CALCIUM PANTOTHENATE [Suspect]
     Active Substance: CALCIUM PANTOTHENATE
     Indication: Product used for unknown indication
     Dosage: UNK UNK, TID (EVERY 8 HRS)
     Route: 065
  107. .ALPHA.-TOCOPHEROL ACETATE, DL- [Suspect]
     Active Substance: .ALPHA.-TOCOPHEROL ACETATE, DL-
     Indication: Product used for unknown indication
     Dosage: 2000 IU, Q.W.
     Route: 065
  108. .ALPHA.-TOCOPHEROL ACETATE, DL- [Suspect]
     Active Substance: .ALPHA.-TOCOPHEROL ACETATE, DL-
     Dosage: 1 DOSAGE FORM, Q.W.
     Route: 065
  109. MAGNESIUM ASPARTATE\POTASSIUM ASPARTATE [Suspect]
     Active Substance: MAGNESIUM ASPARTATE\POTASSIUM ASPARTATE
     Indication: Product used for unknown indication
     Dosage: UNK
     Route: 065
  110. ERGOCALCIFEROL [Suspect]
     Active Substance: ERGOCALCIFEROL
     Indication: Product used for unknown indication
     Dosage: 20000 IU, Q.W.
     Route: 065
  111. ERGOCALCIFEROL [Suspect]
     Active Substance: ERGOCALCIFEROL
     Dosage: 20000 IU, Q.W.
     Route: 065
  112. MAGNESIUM ASPARTATE [Suspect]
     Active Substance: MAGNESIUM ASPARTATE
     Indication: Product used for unknown indication
     Dosage: UNK(STRENGTH: 500) BID (1-0-1), 0.5 DAY
     Route: 065
  113. CALCIUM [Suspect]
     Active Substance: CALCIUM
     Indication: Product used for unknown indication
     Dosage: 1000 MILLIGRAM, QD((STRENGTH: 500) BID (1-0-1))
     Route: 065
  114. CALCIUM [Suspect]
     Active Substance: CALCIUM
     Dosage: ACETYLSALICYLATE CALCIUM, UNK, STRENGTH: 500) BID (1-0-1)
     Route: 065
  115. EVOLOCUMAB [Suspect]
     Active Substance: EVOLOCUMAB
     Indication: Product used for unknown indication
     Dosage: UNK,  Q3W
     Route: 065
  116. MAGNESIUM GLUCONATE [Suspect]
     Active Substance: MAGNESIUM GLUCONATE
     Indication: Product used for unknown indication
     Route: 065
  117. PANTOTHENIC ACID [Suspect]
     Active Substance: PANTOTHENIC ACID
     Indication: Product used for unknown indication
     Dates: start: 2018
  118. PREDNISOLONE [Concomitant]
     Active Substance: PREDNISOLONE
     Indication: Product used for unknown indication
     Dosage: UNK; FOR 6 DAYS
     Route: 065
  119. OLMESARTAN MEDOXOMIL [Concomitant]
     Active Substance: OLMESARTAN MEDOXOMIL
     Indication: Product used for unknown indication
     Dosage: 500 IU, Q12H
     Route: 065
  120. AMBROXOL HYDROCHLORIDE [Concomitant]
     Active Substance: AMBROXOL HYDROCHLORIDE
     Indication: Product used for unknown indication
     Dosage: UNK
     Route: 065

REACTIONS (29)
  - Atrial fibrillation [Recovered/Resolved]
  - Muscle spasms [Unknown]
  - Obstructive airways disorder [Unknown]
  - Eosinophilia [Unknown]
  - Brain natriuretic peptide increased [Unknown]
  - Coronary artery disease [Unknown]
  - Sensation of foreign body [Unknown]
  - Dyspnoea [Unknown]
  - Wheezing [Unknown]
  - Obstructive sleep apnoea syndrome [Unknown]
  - Plantar fasciitis [Unknown]
  - Nasopharyngitis [Unknown]
  - Fractional exhaled nitric oxide increased [Recovered/Resolved]
  - Dysphonia [Not Recovered/Not Resolved]
  - Secretion discharge [Unknown]
  - Exostosis [Unknown]
  - Pneumothorax [Not Recovered/Not Resolved]
  - Plantar fasciitis [Unknown]
  - Muscle spasms [Unknown]
  - Cardiac disorder [Unknown]
  - Chest discomfort [Not Recovered/Not Resolved]
  - Cough [Not Recovered/Not Resolved]
  - Myoglobin blood increased [Unknown]
  - Dyspnoea exertional [Unknown]
  - Nasopharyngitis [Unknown]
  - Obstructive airways disorder [Unknown]
  - Increased upper airway secretion [Unknown]
  - Chest discomfort [Unknown]
  - Myoglobin blood increased [Unknown]

NARRATIVE: CASE EVENT DATE: 20180101
